FAERS Safety Report 15075423 (Version 2)
Quarter: 2023Q4

REPORT INFORMATION
  Report Type: Spontaneous
  Country: US (occurrence: US)
  Receive Date: 20180627
  Receipt Date: 20231128
  Transmission Date: 20240110
  Serious: Yes (Hospitalization, Other)
  Sender: FDA-Public Use
  Company Number: US-SAOL THERAPEUTICS-2018SAO00112

PATIENT
  Age: 74 Year
  Sex: Female

DRUGS (12)
  1. BACLOFEN [Suspect]
     Active Substance: BACLOFEN
     Indication: Muscle spasticity
     Dosage: UNK ?G/ML, \DAY
     Route: 037
  2. BACLOFEN [Suspect]
     Active Substance: BACLOFEN
     Indication: Spinal cord injury
  3. ALBUTEROL [Concomitant]
     Active Substance: ALBUTEROL
  4. AMLODIPINE [Concomitant]
     Active Substance: AMLODIPINE BESYLATE
  5. ASPIRIN [Concomitant]
     Active Substance: ASPIRIN
  6. FINASTERIDE [Concomitant]
     Active Substance: FINASTERIDE
  7. ADVAIR HFA [Concomitant]
     Active Substance: FLUTICASONE PROPIONATE\SALMETEROL XINAFOATE
  8. MYRBETRIQ [Concomitant]
     Active Substance: MIRABEGRON
  9. LYRICA [Concomitant]
     Active Substance: PREGABALIN
  10. ZOLOFT [Concomitant]
     Active Substance: SERTRALINE HYDROCHLORIDE
  11. FERROUS SULFATE [Concomitant]
     Active Substance: FERROUS SULFATE
  12. DONEPEZIL [Concomitant]
     Active Substance: DONEPEZIL

REACTIONS (6)
  - Unresponsive to stimuli [Recovered/Resolved]
  - Mental status changes [None]
  - Lethargy [Unknown]
  - Confusional state [None]
  - Sleep apnoea syndrome [Unknown]
  - Haemoglobin decreased [Unknown]

NARRATIVE: CASE EVENT DATE: 20180101
